FAERS Safety Report 21384182 (Version 1)
Quarter: 2022Q3

REPORT INFORMATION
  Report Type: Spontaneous
  Country: US (occurrence: US)
  Receive Date: 20220928
  Receipt Date: 20220928
  Transmission Date: 20221027
  Serious: Yes (Other)
  Sender: FDA-Public Use
  Company Number: US-JNJFOC-20220936507

PATIENT
  Age: 60 Year
  Sex: Female
  Weight: 59 kg

DRUGS (14)
  1. PONVORY [Suspect]
     Active Substance: PONESIMOD
     Indication: Product used for unknown indication
     Route: 065
  2. BAFIERTAM [Suspect]
     Active Substance: MONOMETHYL FUMARATE
     Indication: Product used for unknown indication
     Route: 065
  3. AUBAGIO [Suspect]
     Active Substance: TERIFLUNOMIDE
     Indication: Multiple sclerosis
     Dates: start: 2018
  4. AVONEX [Concomitant]
     Active Substance: INTERFERON BETA-1A
  5. CYCLOBENZAPRINE [Concomitant]
     Active Substance: CYCLOBENZAPRINE
  6. FLUTICASONE PROPIONATE [Concomitant]
     Active Substance: FLUTICASONE PROPIONATE
  7. ASCORBIC ACID [Concomitant]
     Active Substance: ASCORBIC ACID
  8. .BETA.-CAROTENE [Concomitant]
     Active Substance: .BETA.-CAROTENE
  9. CUPRIC OXIDE [Concomitant]
     Active Substance: CUPRIC OXIDE
  10. .ALPHA.-TOCOPHEROL ACETATE [Concomitant]
     Active Substance: .ALPHA.-TOCOPHEROL ACETATE
  11. ZINC OXIDE [Concomitant]
     Active Substance: ZINC OXIDE
  12. VITAMIN D3 [Concomitant]
     Active Substance: CHOLECALCIFEROL
  13. FORTIFY [Concomitant]
     Active Substance: MENTHOL
  14. CYCLOBENZAPRINE HYDROCHLORIDE [Concomitant]
     Active Substance: CYCLOBENZAPRINE HYDROCHLORIDE

REACTIONS (8)
  - Neuropathy peripheral [Unknown]
  - Dizziness [Unknown]
  - Fatigue [Unknown]
  - Depressed mood [Unknown]
  - Somnolence [Unknown]
  - Mobility decreased [Unknown]
  - Nausea [Unknown]
  - Burning sensation [Unknown]

NARRATIVE: CASE EVENT DATE: 20220101
